FAERS Safety Report 5483111-1 (Version None)
Quarter: 2007Q4

REPORT INFORMATION
  Report Type: 
  Country: None (occurrence: None)
  Receive Date: 20071011
  Receipt Date: 20071004
  Transmission Date: 20080405
  Serious: Yes (Other)
  Sender: FDA-Public Use
  Company Number: GR-ABBOTT-07P-066-0415527-00

PATIENT
  Age: 48 Year
  Sex: Male
  Weight: 80 kg

DRUGS (1)
  1. KLARICID [Suspect]
     Indication: PHARYNGOLARYNGEAL PAIN
     Route: 048
     Dates: start: 20070815, end: 20070815

REACTIONS (2)
  - DYSPNOEA [None]
  - PALATAL OEDEMA [None]
